FAERS Safety Report 8220274-9 (Version None)
Quarter: 2012Q1

REPORT INFORMATION
  Report Type: 
  Country: None (occurrence: None)
  Receive Date: 20120315
  Receipt Date: 20120307
  Transmission Date: 20120608
  Serious: Yes (Hospitalization, Other)
  Sender: FDA-Public Use
  Company Number: 2009SP028418

PATIENT
  Age: 23 Year
  Sex: Female
  Weight: 85.7298 kg

DRUGS (6)
  1. LORTAB [Concomitant]
  2. HYDROCODONE [Concomitant]
  3. CLONAZEPAM [Concomitant]
  4. IBUPROFEN [Concomitant]
  5. NUVARING [Suspect]
     Indication: CONTRACEPTION
     Dosage: 1 DF;QM;
     Dates: start: 20080320, end: 20081123
  6. CARISOPRODOL [Concomitant]

REACTIONS (28)
  - PNEUMONIA [None]
  - RASH [None]
  - ABDOMINAL PAIN [None]
  - SPINAL CORD INJURY CERVICAL [None]
  - ARRHYTHMIA [None]
  - HEADACHE [None]
  - NECK PAIN [None]
  - SIALOADENITIS [None]
  - LUNG CONSOLIDATION [None]
  - PLEURAL EFFUSION [None]
  - AMENORRHOEA [None]
  - MELANOCYTIC NAEVUS [None]
  - GASTROENTERITIS [None]
  - PULMONARY EMBOLISM [None]
  - PAIN IN JAW [None]
  - THROMBOSIS [None]
  - NAIL INJURY [None]
  - PULMONARY INFARCTION [None]
  - VERTIGO [None]
  - INFLUENZA LIKE ILLNESS [None]
  - JAW DISORDER [None]
  - ABDOMINAL PAIN LOWER [None]
  - UPPER RESPIRATORY TRACT INFECTION [None]
  - FALL [None]
  - ROAD TRAFFIC ACCIDENT [None]
  - VIRAL INFECTION [None]
  - INFECTIOUS MONONUCLEOSIS [None]
  - POST CONCUSSION SYNDROME [None]
